FAERS Safety Report 8560808-8 (Version None)
Quarter: 2012Q3

REPORT INFORMATION
  Report Type: 
  Country: None (occurrence: None)
  Receive Date: 20120802
  Receipt Date: 20120719
  Transmission Date: 20120928
  Serious: Yes (Hospitalization)
  Sender: FDA-Public Use
  Company Number: DK-009507513-1207DNK000575

PATIENT

DRUGS (8)
  1. SIMVASTATIN [Concomitant]
  2. ASPIRIN [Concomitant]
  3. LOSARTAN POTASSIUM [Suspect]
     Indication: HYPERTENSION
     Route: 048
     Dates: end: 20120608
  4. JANUVIA [Suspect]
     Dosage: DOSIS: 100 MG 1 GANG DAGLIGT, STYRKE: 100
     Route: 048
     Dates: end: 20120608
  5. MAGNYL [Concomitant]
  6. JANUVIA [Suspect]
     Indication: TYPE 2 DIABETES MELLITUS
     Dosage: 100 MG, QD
     Route: 048
     Dates: start: 20120608
  7. COZAAR [Suspect]
     Indication: HYPERTENSION
     Dosage: 50 MG, QD
     Route: 048
     Dates: start: 20120608
  8. CARVEDILOL [Concomitant]

REACTIONS (2)
  - BLOOD CREATININE INCREASED [None]
  - RENAL IMPAIRMENT [None]
